FAERS Safety Report 6134738-5 (Version None)
Quarter: 2009Q1

REPORT INFORMATION
  Report Type: 
  Country: None (occurrence: None)
  Receive Date: 20090327
  Receipt Date: 20090320
  Transmission Date: 20090719
  Serious: Yes (Other)
  Sender: FDA-Public Use
  Company Number: US-ROCHE-623387

PATIENT
  Age: 51 Year
  Sex: Female

DRUGS (3)
  1. VALIUM [Suspect]
     Indication: DRUG USE FOR UNKNOWN INDICATION
     Route: 065
  2. AVONEX [Suspect]
     Indication: MULTIPLE SCLEROSIS
     Route: 030
     Dates: end: 20030901
  3. AVONEX [Suspect]
     Dosage: FORM: LIQUID
     Route: 030
     Dates: start: 20030901

REACTIONS (2)
  - OVERDOSE [None]
  - SUICIDE ATTEMPT [None]
